FAERS Safety Report 9012492 (Version 4)
Quarter: 2013Q2

REPORT INFORMATION
  Report Type: Spontaneous
  Country: US (occurrence: US)
  Receive Date: 20130114
  Receipt Date: 20130516
  Transmission Date: 20140414
  Serious: No
  Sender: FDA-Public Use
  Company Number: US-PFIZER INC-2013010055

PATIENT
  Age: 60 Year
  Sex: Female
  Weight: 74.83 kg

DRUGS (3)
  1. ALPRAZOLAM [Suspect]
     Indication: ANXIETY
     Dosage: 1.5 MG (ONE AND A HALF TABLETS), 1X/DAY
     Route: 048
     Dates: start: 1991
  2. ALPRAZOLAM [Suspect]
     Indication: SLEEP DISORDER
  3. AMITRIPTYLINE [Concomitant]
     Dosage: UNK

REACTIONS (4)
  - Product counterfeit [Unknown]
  - Off label use [Unknown]
  - Drug ineffective [Unknown]
  - Tablet physical issue [Unknown]
